FAERS Safety Report 7110773-5 (Version None)
Quarter: 2010Q4

REPORT INFORMATION
  Report Type: 
  Country: None (occurrence: None)
  Receive Date: 20101118
  Receipt Date: 20101110
  Transmission Date: 20110411
  Serious: Yes (Life-Threatening, Hospitalization)
  Sender: FDA-Public Use
  Company Number: B0685043A

PATIENT
  Age: 23 Year
  Sex: Female

DRUGS (2)
  1. LAMICTAL [Suspect]
     Route: 065
  2. VALPROATE SODIUM [Concomitant]
     Indication: EPILEPSY

REACTIONS (3)
  - NONSPECIFIC REACTION [None]
  - RASH [None]
  - STEVENS-JOHNSON SYNDROME [None]
